FAERS Safety Report 5722544-2 (Version None)
Quarter: 2008Q2

REPORT INFORMATION
  Report Type: 
  Country: None (occurrence: None)
  Receive Date: 20080429
  Receipt Date: 20070928
  Transmission Date: 20081010
  Serious: No
  Sender: FDA-Public Use
  Company Number: US-ASTRAZENECA-2007UW22735

PATIENT
  Age: 71 Year
  Sex: Female
  Weight: 74.8 kg

DRUGS (3)
  1. NEXIUM [Suspect]
     Indication: SENSATION OF FOREIGN BODY
     Route: 048
  2. LIPITOR [Concomitant]
  3. BLOOD PRESSURE MEDICATION (UNSPECIFIED) [Concomitant]

REACTIONS (2)
  - RASH [None]
  - URINARY TRACT INFECTION [None]
